FAERS Safety Report 16805940 (Version 1)
Quarter: 2019Q4

REPORT INFORMATION
  Report Type: Spontaneous
  Country: US (occurrence: US)
  Receive Date: 20190913
  Receipt Date: 20190913
  Transmission Date: 20200122
  Serious: Yes (Disabling, Other)
  Sender: FDA-Public Use
  Company Number: None

PATIENT
  Age: 50 Year
  Sex: Female
  Weight: 51.66 kg

DRUGS (1)
  1. MACROBID [Suspect]
     Active Substance: NITROFURANTOIN\NITROFURANTOIN MONOHYDRATE
     Indication: BETA HAEMOLYTIC STREPTOCOCCAL INFECTION
     Route: 048
     Dates: start: 20190809, end: 20190811

REACTIONS (12)
  - Renal pain [None]
  - Groin pain [None]
  - Ill-defined disorder [None]
  - Arthralgia [None]
  - Influenza like illness [None]
  - Wheezing [None]
  - Abdominal pain [None]
  - Gait disturbance [None]
  - Cough [None]
  - Back pain [None]
  - Chest pain [None]
  - Hepatic pain [None]

NARRATIVE: CASE EVENT DATE: 20190810
